FAERS Safety Report 6752121-6 (Version None)
Quarter: 2010Q2

REPORT INFORMATION
  Report Type: 
  Country: None (occurrence: None)
  Receive Date: 20100602
  Receipt Date: 20100526
  Transmission Date: 20101027
  Serious: Yes (Death, Other)
  Sender: FDA-Public Use
  Company Number: NL-ELI_LILLY_AND_COMPANY-NL201005005087

PATIENT
  Sex: Male

DRUGS (7)
  1. CIALIS [Suspect]
     Indication: ERECTILE DYSFUNCTION
     Dosage: 5 MG, ON DEMAND
     Route: 065
     Dates: start: 20091006
  2. ISORDIL [Interacting]
     Dosage: 5 MG, UNKNOWN
     Route: 065
  3. ADALAT [Concomitant]
     Dosage: 30 MG, UNK
  4. ASCAL [Concomitant]
  5. CRESTOR [Concomitant]
     Dosage: 10 MG, UNK
  6. SELOKEEN [Concomitant]
     Dosage: 150 MG, UNK
  7. MICARDIS [Concomitant]

REACTIONS (3)
  - CHEST PAIN [None]
  - DRUG INTERACTION [None]
  - LOSS OF CONSCIOUSNESS [None]
